FAERS Safety Report 5723356-6 (Version None)
Quarter: 2008Q2

REPORT INFORMATION
  Report Type: 
  Country: None (occurrence: None)
  Receive Date: 20080429
  Receipt Date: 20080429
  Transmission Date: 20081010
  Serious: No
  Sender: FDA-Public Use
  Company Number: None

PATIENT
  Sex: Female

DRUGS (1)
  1. ZANAFLEX [Suspect]
     Indication: INTRACRANIAL ANEURYSM
     Dosage: 7 TABLETS DAILY PO
     Route: 048
     Dates: start: 20080205, end: 20080424

REACTIONS (4)
  - DRUG WITHDRAWAL SYNDROME [None]
  - MUSCULOSKELETAL STIFFNESS [None]
  - PAIN [None]
  - THERAPEUTIC RESPONSE UNEXPECTED WITH DRUG SUBSTITUTION [None]
